FAERS Safety Report 16826513 (Version 1)
Quarter: 2019Q3

REPORT INFORMATION
  Report Type: Spontaneous
  Country: US (occurrence: US)
  Receive Date: 20190729
  Receipt Date: 20190729
  Transmission Date: 20191005
  Serious: No
  Sender: FDA-Public Use
  Company Number: None

PATIENT
  Age: 79 Year
  Sex: Male

DRUGS (1)
  1. AFINITOR [Suspect]
     Active Substance: EVEROLIMUS
     Route: 058
     Dates: start: 201901

REACTIONS (2)
  - Hypotension [None]
  - Gastrointestinal haemorrhage [None]

NARRATIVE: CASE EVENT DATE: 20190725
